FAERS Safety Report 14065881 (Version 2)
Quarter: 2017Q4

REPORT INFORMATION
  Report Type: Spontaneous
  Country: US (occurrence: US)
  Receive Date: 20171009
  Receipt Date: 20171024
  Transmission Date: 20180321
  Serious: Yes (Death, Other)
  Sender: FDA-Public Use
  Company Number: US-ASTELLAS-2017US040268

PATIENT
  Age: 48 Year
  Sex: Female

DRUGS (14)
  1. AMBISOME [Suspect]
     Active Substance: AMPHOTERICIN B
     Route: 033
  2. ISAVUCONAZOLE [Suspect]
     Active Substance: ISAVUCONAZOLE
     Indication: ANTIFUNGAL TREATMENT
     Route: 042
  3. FLUCONAZOLE. [Concomitant]
     Active Substance: FLUCONAZOLE
     Indication: ANTIBIOTIC PROPHYLAXIS
     Route: 065
  4. GANCICLOVIR. [Concomitant]
     Active Substance: GANCICLOVIR
     Indication: ANTIBIOTIC PROPHYLAXIS
     Dosage: 1.25 MG/KG, ONCE DAILY (DOSE ADJUSTED FOR RENAL IMPAIRMENT)
     Route: 042
  5. AMBISOME [Suspect]
     Active Substance: AMPHOTERICIN B
     Indication: ANTIFUNGAL TREATMENT
     Route: 042
  6. COTRIMOXAZOLE [Concomitant]
     Active Substance: SULFAMETHOXAZOLE\TRIMETHOPRIM
     Indication: ANTIBIOTIC PROPHYLAXIS
     Dosage: 160/800 MG, TWICE DAILY (SATURDAY AND SUNDAY)
     Route: 065
  7. CASPOFUNGIN [Concomitant]
     Active Substance: CASPOFUNGIN
     Indication: ANTIFUNGAL TREATMENT
     Route: 065
  8. CASPOFUNGIN [Concomitant]
     Active Substance: CASPOFUNGIN
     Route: 065
  9. POSACONAZOLE [Concomitant]
     Active Substance: POSACONAZOLE
     Indication: ANTIFUNGAL TREATMENT
     Route: 042
  10. METHYLPREDNISOLONE. [Suspect]
     Active Substance: METHYLPREDNISOLONE
     Indication: LIVER TRANSPLANT
     Dosage: UNK UNK, UNKNOWN FREQ.
     Route: 065
  11. MYCOPHENOLATE MOFETIL. [Concomitant]
     Active Substance: MYCOPHENOLATE MOFETIL
     Indication: LIVER TRANSPLANT
     Route: 065
  12. BASILIXIMAB [Concomitant]
     Active Substance: BASILIXIMAB
     Indication: LIVER TRANSPLANT
     Route: 065
  13. TACROLIMUS. [Suspect]
     Active Substance: TACROLIMUS
     Indication: LIVER TRANSPLANT
     Dosage: UNK UNK, UNKNOWN FREQ. (TARGET TROUGH LEVELS OF 6-8 NG/ML)
     Route: 065
  14. POSACONAZOLE [Concomitant]
     Active Substance: POSACONAZOLE
     Route: 042

REACTIONS (4)
  - Multiple organ dysfunction syndrome [Fatal]
  - Drug ineffective [Fatal]
  - Mucormycosis [Fatal]
  - Off label use [Unknown]
